FAERS Safety Report 7479882-5 (Version None)
Quarter: 2011Q2

REPORT INFORMATION
  Report Type: 
  Country: None (occurrence: None)
  Receive Date: 20110515
  Receipt Date: 20100414
  Transmission Date: 20111010
  Serious: No
  Sender: FDA-Public Use
  Company Number: US-NOVEN-ALL1-2010-02246

PATIENT

DRUGS (1)
  1. DAYTRANA [Suspect]
     Dosage: 15 MG, 1X/DAY:QD
     Route: 062
     Dates: start: 20090101

REACTIONS (5)
  - OFF LABEL USE [None]
  - DRUG PRESCRIBING ERROR [None]
  - BODY HEIGHT BELOW NORMAL [None]
  - INCORRECT STORAGE OF DRUG [None]
  - PRODUCT QUALITY ISSUE [None]
